FAERS Safety Report 12970516 (Version 1)
Quarter: 2016Q4

REPORT INFORMATION
  Report Type: Spontaneous
  Country: US (occurrence: US)
  Receive Date: 20161123
  Receipt Date: 20161123
  Transmission Date: 20170207
  Serious: No
  Sender: FDA-Public Use
  Company Number: US-ASTRAZENECA-2016SF14109

PATIENT
  Age: 21239 Day
  Sex: Female
  Weight: 85.7 kg

DRUGS (4)
  1. IPATROPRIUM NEBULIZER [Concomitant]
     Indication: ASTHMA
     Dosage: AS REQUIRED
  2. PREDNISONE. [Concomitant]
     Active Substance: PREDNISONE
     Indication: DYSPNOEA
     Dosage: AS REQUIRED
  3. SYMBICORT [Suspect]
     Active Substance: BUDESONIDE\FORMOTEROL FUMARATE DIHYDRATE
     Indication: ASTHMA
     Dosage: UNKNOWN STRENGTH, ONE PUFF DAILY
     Route: 055
     Dates: start: 20161018
  4. ALBUTEROL MEBULIZER [Concomitant]
     Indication: ASTHMA
     Dosage: AS REQUIRED

REACTIONS (4)
  - Oropharyngeal pain [Recovering/Resolving]
  - Dysphonia [Recovering/Resolving]
  - Off label use [Unknown]
  - Off label use of device [Unknown]

NARRATIVE: CASE EVENT DATE: 20161018
